FAERS Safety Report 7372152-5 (Version None)
Quarter: 2011Q1

REPORT INFORMATION
  Report Type: 
  Country: None (occurrence: None)
  Receive Date: 20110311
  Receipt Date: 20110224
  Transmission Date: 20110831
  Serious: Yes (Congenital Anomaly, Other)
  Sender: FDA-Public Use
  Company Number: 2011SP008793

PATIENT

DRUGS (2)
  1. REBETOL [Suspect]
     Indication: DRUG EXPOSURE DURING PREGNANCY
     Dosage: ;TRPL
     Route: 064
     Dates: start: 20090101, end: 20100604
  2. PEGINTERFERON ALFA-2B [Suspect]
     Indication: DRUG EXPOSURE DURING PREGNANCY
     Dosage: QW;TRPL
     Route: 064
     Dates: start: 20090101, end: 20100604

REACTIONS (2)
  - MATERNAL DRUGS AFFECTING FOETUS [None]
  - VENTRICULAR SEPTAL DEFECT [None]
